FAERS Safety Report 11988383 (Version 1)
Quarter: 2016Q1

REPORT INFORMATION
  Report Type: Other
  Country: ES (occurrence: ES)
  Receive Date: 20160202
  Receipt Date: 20160202
  Transmission Date: 20160526
  Serious: Yes (Other)
  Sender: FDA-Public Use
  Company Number: ES-WARNER CHILCOTT, LLC-1047187

PATIENT
  Age: 73 Year
  Sex: Female

DRUGS (7)
  1. PROTON PUMP INHIBITORS [Concomitant]
     Active Substance: UNSPECIFIED INGREDIENT
  2. DENOSUMAB [Concomitant]
     Active Substance: DENOSUMAB
  3. METHOTREXATE [Concomitant]
     Active Substance: METHOTREXATE
  4. ACTONEL [Suspect]
     Active Substance: RISEDRONATE SODIUM
     Route: 048
  5. STRONTIUM RANELATE [Concomitant]
     Active Substance: STRONTIUM RANELATE
  6. PREDNISONE. [Suspect]
     Active Substance: PREDNISONE
     Route: 065
  7. CICLOSPORIN [Concomitant]
     Active Substance: CYCLOSPORINE

REACTIONS (1)
  - Atypical femur fracture [Unknown]
